FAERS Safety Report 24556267 (Version 1)
Quarter: 2024Q4

REPORT INFORMATION
  Report Type: Spontaneous
  Country: US (occurrence: US)
  Receive Date: 20241028
  Receipt Date: 20241028
  Transmission Date: 20250115
  Serious: Yes (Hospitalization, Disabling, Other)
  Sender: LEXICON PHARMACEUTICALS
  Company Number: US-LEX-000520

PATIENT
  Age: 58 Year
  Sex: Female

DRUGS (2)
  1. INPEFA [Suspect]
     Active Substance: SOTAGLIFLOZIN
     Indication: Cardiac failure congestive
     Route: 048
     Dates: end: 20241015
  2. INPEFA [Suspect]
     Active Substance: SOTAGLIFLOZIN
     Indication: Cardiac failure congestive
     Route: 048

REACTIONS (7)
  - Arthritis [Unknown]
  - Fungal infection [Unknown]
  - Urinary tract infection [Unknown]
  - Product use issue [Unknown]
  - Therapy interrupted [Unknown]
  - Myocardial oedema [Unknown]
  - Pulmonary oedema [Unknown]

NARRATIVE: CASE EVENT DATE: 20240707
